FAERS Safety Report 16453002 (Version 1)
Quarter: 2019Q2

REPORT INFORMATION
  Report Type: Spontaneous
  Country: US (occurrence: US)
  Receive Date: 20190619
  Receipt Date: 20190619
  Transmission Date: 20190711
  Serious: No
  Sender: FDA-Public Use
  Company Number: US-SA-2019SA161041

PATIENT
  Age: 62 Year
  Sex: Male

DRUGS (8)
  1. DUPIXENT [Suspect]
     Active Substance: DUPILUMAB
     Indication: DERMATITIS
     Dosage: 300 MG, QOW
     Route: 058
     Dates: start: 20190404
  2. PREDNISONE. [Concomitant]
     Active Substance: PREDNISONE
  3. TACROLIMUS. [Concomitant]
     Active Substance: TACROLIMUS
  4. ALPRAZOLAM. [Concomitant]
     Active Substance: ALPRAZOLAM
  5. HYDROXYZINE HCL [Concomitant]
     Active Substance: HYDROXYZINE HYDROCHLORIDE
  6. CYCLOSPORINE. [Concomitant]
     Active Substance: CYCLOSPORINE
  7. LOSARTAN POTASSIUM. [Concomitant]
     Active Substance: LOSARTAN POTASSIUM
  8. ROSUVASTATIN. [Concomitant]
     Active Substance: ROSUVASTATIN

REACTIONS (2)
  - Product dose omission [Not Recovered/Not Resolved]
  - Unevaluable event [Not Recovered/Not Resolved]

NARRATIVE: CASE EVENT DATE: 2019
